FAERS Safety Report 16473836 (Version 1)
Quarter: 2019Q2

REPORT INFORMATION
  Report Type: Spontaneous
  Country: US (occurrence: US)
  Receive Date: 20190515
  Receipt Date: 20190515
  Transmission Date: 20190711
  Serious: Yes (Hospitalization)
  Sender: FDA-Public Use
  Company Number: None

PATIENT
  Age: 66 Year
  Sex: Male

DRUGS (1)
  1. DIATRIZOATE [Suspect]
     Active Substance: DIATRIZOATE MEGLUMINE
     Indication: CYSTOGRAM
     Route: 048
     Dates: start: 20190423, end: 20190423

REACTIONS (6)
  - Anaphylactic reaction [None]
  - Formication [None]
  - Flushing [None]
  - Throat tightness [None]
  - Urticaria [None]
  - Pruritus [None]

NARRATIVE: CASE EVENT DATE: 20190423
